FAERS Safety Report 10625142 (Version 1)
Quarter: 2014Q4

REPORT INFORMATION
  Report Type: Report from Study
  Country: NO (occurrence: None)
  Receive Date: 20141202
  Receipt Date: 20141202
  Transmission Date: 20150529
  Serious: Yes (Hospitalization, Disabling)
  Sender: FDA-Public Use
  Company Number: 2014DEPNO00086

PATIENT

DRUGS (6)
  1. DEPOCYT(E) (CYTARABINE) LIPOSOME INJECTABLE SUSPENSION [Suspect]
     Active Substance: CYTARABINE
     Indication: DIFFUSE LARGE B-CELL LYMPHOMA
     Dosage: AS PER STUDY PROTOCOL: 1 COURSE OF CHEMOTHERAPY, INTRATHECAL
     Route: 037
     Dates: start: 20140830, end: 20140904
  2. PREDNISON [Suspect]
     Active Substance: PREDNISONE
     Dosage: AS PER STUDY PROTOCOL: 1 COURSE OF CHEMOTHERAPY, ORAL
     Route: 048
     Dates: start: 20140830, end: 20140904
  3. METHOTREXATE (METHOTREXATE SODIUM) [Suspect]
     Active Substance: METHOTREXATE SODIUM
     Dosage: AS PER STUDY PROTOCOL: 1 COURSE OF CHEMOTHERAPY, INTRAVENOUS
     Route: 042
     Dates: start: 20140830, end: 20140904
  4. CYCLOPHOSPHAMIDE (CYCLOPHOSPHAMIDE) [Suspect]
     Active Substance: CYCLOPHOSPHAMIDE
     Dosage: AS PER STUDY PROTOCOL: 1 COURSE OF CHEMOTHERAPY, ORAL
     Route: 048
     Dates: start: 20140830, end: 20140904
  5. DOXORUBICIN HYDROCHLORIDE. [Suspect]
     Active Substance: DOXORUBICIN HYDROCHLORIDE
     Dosage: AS PER STUDY PROTOCOL: 1 COURSE OF CHEMOTHERAPY, ORAL
     Route: 048
     Dates: start: 20140830, end: 20140904
  6. VINCRISTINE (VINCRISTINE SULFATE) [Suspect]
     Active Substance: VINCRISTINE SULFATE
     Dosage: AS PER STUDY PROTOCOL: 1 COURSE OF CHEMOTHERAPY, ORAL
     Route: 048
     Dates: start: 20140830, end: 20140904

REACTIONS (5)
  - Malaise [None]
  - Neutropenia [None]
  - Infection [None]
  - Decreased appetite [None]
  - Abdominal pain [None]

NARRATIVE: CASE EVENT DATE: 20140909
